FAERS Safety Report 5764723-4 (Version None)
Quarter: 2008Q2

REPORT INFORMATION
  Report Type: 
  Country: None (occurrence: None)
  Receive Date: 20080611
  Receipt Date: 20080604
  Transmission Date: 20081010
  Serious: Yes (Death, Hospitalization)
  Sender: FDA-Public Use
  Company Number: GB-RANBAXY-2008RR-15622

PATIENT

DRUGS (1)
  1. ACETAMINOPHEN [Suspect]

REACTIONS (2)
  - NEOPLASM [None]
  - POISONING DELIBERATE [None]
